FAERS Safety Report 10225104 (Version 1)
Quarter: 2014Q2

REPORT INFORMATION
  Report Type: Spontaneous
  Country: ID (occurrence: ID)
  Receive Date: 20140609
  Receipt Date: 20140609
  Transmission Date: 20141212
  Serious: Yes (Hospitalization)
  Sender: FDA-Public Use
  Company Number: ID-BAYER-2014-080939

PATIENT
  Age: 41 Year
  Sex: Male

DRUGS (7)
  1. ACETYLSALICYLIC ACID({=100 MG) [Suspect]
     Indication: ANTIPLATELET THERAPY
  2. CLOPIDOGREL [Suspect]
     Indication: ANTIPLATELET THERAPY
  3. ENOXAPARIN [Concomitant]
     Indication: ANTIPLATELET THERAPY
  4. ATORVASTATIN [Concomitant]
  5. ISDN [Concomitant]
  6. RAMIPRIL [RAMIPRIL] [Concomitant]
  7. FUROSEMIDE [FUROSEMIDE] [Concomitant]

REACTIONS (2)
  - Acute myocardial infarction [None]
  - Drug resistance [None]
